FAERS Safety Report 5288203-8 (Version None)
Quarter: 2007Q2

REPORT INFORMATION
  Report Type: 
  Country: None (occurrence: None)
  Receive Date: 20070402
  Receipt Date: 20070402
  Transmission Date: 20071010
  Serious: No
  Sender: FDA-Public Use
  Company Number: None

PATIENT
  Age: 47 Year
  Sex: Male
  Weight: 99.7913 kg

DRUGS (2)
  1. NAFCILLIN SODIUM [Suspect]
     Indication: POST PROCEDURAL INFECTION
     Dosage: 2 GM Q 4HR IV
     Route: 042
     Dates: start: 20070322
  2. NAFCILLIN SODIUM [Suspect]
     Indication: SPINAL DISORDER
     Dosage: 2 GM Q 4HR IV
     Route: 042
     Dates: start: 20070322

REACTIONS (3)
  - INFUSION RELATED REACTION [None]
  - PRURITUS [None]
  - RASH GENERALISED [None]
